FAERS Safety Report 9166182 (Version 2)
Quarter: 2013Q2

REPORT INFORMATION
  Report Type: Report from Study
  Country: US (occurrence: US)
  Receive Date: 20130315
  Receipt Date: 20130401
  Transmission Date: 20140414
  Serious: Yes (Death)
  Sender: FDA-Public Use
  Company Number: US-ROCHE-1202261

PATIENT
  Sex: Female

DRUGS (6)
  1. XELODA [Suspect]
     Indication: PANCREATIC CARCINOMA
     Dosage: FOR 14 DAYS
     Route: 048
     Dates: start: 20120213, end: 20120508
  2. OXYCODONE [Concomitant]
     Indication: PAIN MANAGEMENT
     Dosage: 1 TO 2 TABLES EVERY DAY
     Route: 048
     Dates: start: 20120505
  3. AMBIEN [Concomitant]
     Indication: INSOMNIA
     Dosage: 1 TABLET AT HOURS
     Route: 048
     Dates: start: 20120312
  4. CREON [Concomitant]
     Dosage: 2 CAPSULES
     Route: 048
     Dates: start: 20120410
  5. MAG OXIDE [Concomitant]
     Indication: BLOOD MAGNESIUM DECREASED
     Dosage: 1 TAB EVERY DAY
     Route: 048
     Dates: start: 20120410
  6. FONDAPARINUX [Concomitant]
     Indication: ANTICOAGULANT THERAPY
     Route: 058
     Dates: start: 20120531

REACTIONS (1)
  - Pancreatic carcinoma [Fatal]
